FAERS Safety Report 6212360-X (Version None)
Quarter: 2009Q2

REPORT INFORMATION
  Report Type: 
  Country: None (occurrence: None)
  Receive Date: 20090529
  Receipt Date: 20090514
  Transmission Date: 20091009
  Serious: Yes (Hospitalization)
  Sender: FDA-Public Use
  Company Number: DSJ-2009-03085

PATIENT
  Age: 60 Year
  Sex: Male
  Weight: 53 kg

DRUGS (10)
  1. OLMESARTAN MEDOXOMIL [Suspect]
     Indication: ESSENTIAL HYPERTENSION
     Dosage: SEE IMAGE
     Dates: start: 20070210, end: 20070531
  2. OLMESARTAN MEDOXOMIL [Suspect]
     Indication: ESSENTIAL HYPERTENSION
     Dosage: SEE IMAGE
     Dates: start: 20070601, end: 20070907
  3. OLMESARTAN MEDOXOMIL [Suspect]
     Indication: ESSENTIAL HYPERTENSION
     Dosage: SEE IMAGE
     Dates: start: 20080502, end: 20080614
  4. OLMESARTAN MEDOXOMIL [Suspect]
     Indication: ESSENTIAL HYPERTENSION
     Dosage: SEE IMAGE
     Dates: start: 20080726
  5. DIOVAN [Concomitant]
  6. OMEPRAL (OMEPRAZOLE) (OMEPRAZOLE) [Concomitant]
  7. KAMAG (MAGNESIUM OXIDE) (MAGNESIUM OXIDE) [Concomitant]
  8. ARTIST (CARVEDILOL) (CARVEDILOL) [Concomitant]
  9. MUCOSTA (REBAMIPIDE) (REBAMIPIDE) [Concomitant]
  10. ALLORIN (ALLOPURINOL) (ALLOPURINOL) [Concomitant]

REACTIONS (3)
  - ANOREXIA [None]
  - BLOOD PRESSURE SYSTOLIC INCREASED [None]
  - CEREBRAL INFARCTION [None]
